FAERS Safety Report 5383098-6 (Version None)
Quarter: 2007Q3

REPORT INFORMATION
  Report Type: 
  Country: None (occurrence: None)
  Receive Date: 20070710
  Receipt Date: 20070702
  Transmission Date: 20080115
  Serious: Yes (Hospitalization, Disabling, Other)
  Sender: FDA-Public Use
  Company Number: US-MERCK-0609USA04112

PATIENT
  Age: 76 Year
  Sex: Female

DRUGS (24)
  1. FOSAMAX [Suspect]
     Indication: OSTEOPOROSIS
     Route: 048
     Dates: start: 20030220, end: 20060401
  2. FOSAMAX [Suspect]
     Route: 048
     Dates: start: 19990517, end: 20030216
  3. FOSAMAX [Suspect]
     Route: 048
     Dates: start: 20030217, end: 20030219
  4. FOSAMAX [Suspect]
     Indication: OSTEOPOROSIS PROPHYLAXIS
     Route: 048
     Dates: start: 20030220, end: 20060401
  5. FOSAMAX [Suspect]
     Route: 048
     Dates: start: 19990517, end: 20030216
  6. FOSAMAX [Suspect]
     Route: 048
     Dates: start: 20030217, end: 20030219
  7. TERAZOSIN HYDROCHLORIDE [Concomitant]
     Indication: BLOOD PRESSURE
     Route: 065
     Dates: start: 20010101
  8. ZOCOR [Concomitant]
     Indication: BLOOD CHOLESTEROL
     Route: 065
     Dates: start: 20030101
  9. PROPRANOLOL HYDROCHLORIDE [Concomitant]
     Indication: BLOOD PRESSURE
     Route: 065
     Dates: start: 20000101
  10. CAPTOPRIL [Concomitant]
     Indication: BLOOD PRESSURE
     Route: 065
     Dates: start: 20000101, end: 20070201
  11. NITROGLYCERIN [Concomitant]
     Indication: PROPHYLAXIS
     Route: 065
     Dates: start: 20010101
  12. COZAAR [Concomitant]
     Indication: BLOOD PRESSURE
     Route: 065
     Dates: start: 20030101
  13. COZAAR [Concomitant]
     Indication: SWELLING
     Route: 065
     Dates: start: 20030101
  14. ASPIRIN [Concomitant]
     Indication: CARDIAC DISORDER
     Route: 065
     Dates: start: 20000101
  15. AVANDIA [Concomitant]
     Indication: DIABETES MELLITUS
     Route: 065
     Dates: start: 20010101, end: 20070201
  16. AVANDIA [Concomitant]
     Route: 065
     Dates: start: 20070201
  17. GLYBURIDE [Concomitant]
     Indication: DIABETES MELLITUS
     Route: 065
     Dates: start: 20000101
  18. HYDROCHLOROTHIAZIDE [Concomitant]
     Indication: BLOOD PRESSURE
     Route: 065
     Dates: start: 20050101
  19. HYDROCHLOROTHIAZIDE [Concomitant]
     Indication: SWELLING
     Route: 065
     Dates: start: 20050101
  20. CALCIUM (UNSPECIFIED) AND VITAMIN D (UNSPECIFIED) [Concomitant]
     Indication: BONE DISORDER
     Route: 065
     Dates: start: 20000101
  21. GLUCOPHAGE [Concomitant]
     Indication: DIABETES MELLITUS
     Route: 065
     Dates: start: 20000101, end: 20060101
  22. CARDURA [Concomitant]
     Indication: BLOOD PRESSURE
     Route: 065
     Dates: start: 20000101, end: 20000101
  23. FELODIPINE [Concomitant]
     Indication: BLOOD PRESSURE
     Route: 065
     Dates: start: 20050101, end: 20070201
  24. DILTIAZEM HYDROCHLORIDE [Concomitant]
     Indication: BLOOD PRESSURE
     Route: 065
     Dates: start: 20000101, end: 20020101

REACTIONS (28)
  - ANAEMIA [None]
  - ANGIOPATHY [None]
  - ANXIETY [None]
  - BLOOD DISORDER [None]
  - CARDIAC FAILURE CONGESTIVE [None]
  - CARPAL TUNNEL SYNDROME [None]
  - CHOLECYSTITIS [None]
  - CHOLELITHIASIS [None]
  - DEAFNESS [None]
  - DEPRESSION [None]
  - DIARRHOEA [None]
  - FALL [None]
  - FEMORAL NECK FRACTURE [None]
  - FLATULENCE [None]
  - HYPERTENSION [None]
  - HYPOGLYCAEMIA [None]
  - IMPAIRED HEALING [None]
  - JAW FRACTURE [None]
  - MENISCUS LESION [None]
  - MYELODYSPLASTIC SYNDROME [None]
  - OSTEOMYELITIS [None]
  - OSTEONECROSIS [None]
  - PLEURAL EFFUSION [None]
  - PNEUMONIA [None]
  - SINUSITIS [None]
  - TINNITUS [None]
  - URINARY TRACT INFECTION [None]
  - WRIST FRACTURE [None]
